FAERS Safety Report 9375617 (Version 1)
Quarter: 2013Q2

REPORT INFORMATION
  Report Type: Report from Study
  Country: US (occurrence: US)
  Receive Date: 20130628
  Receipt Date: 20130628
  Transmission Date: 20140414
  Serious: No
  Sender: FDA-Public Use
  Company Number: US-VERTEX PHARMACEUTICALS INC-2013-007315

PATIENT
  Age: 27 Year
  Sex: Male

DRUGS (1)
  1. VX-770 [Suspect]
     Indication: CYSTIC FIBROSIS
     Dosage: UNK
     Route: 048
     Dates: start: 20120228

REACTIONS (3)
  - Gastrooesophageal reflux disease [Recovered/Resolved]
  - Influenza like illness [Recovered/Resolved]
  - Drug dose omission [Recovered/Resolved]
